FAERS Safety Report 4859555-5 (Version None)
Quarter: 2005Q4

REPORT INFORMATION
  Report Type: 
  Country: None (occurrence: None)
  Receive Date: 20051219
  Receipt Date: 20050622
  Transmission Date: 20060501
  Serious: No
  Sender: FDA-Public Use
  Company Number: US-GLAXOSMITHKLINE-A0563750A

PATIENT
  Age: 40 Year
  Sex: Male

DRUGS (3)
  1. NICODERM CQ [Suspect]
     Dates: start: 20050607
  2. HERBAL DIETARY SUPPLEMENT [Concomitant]
  3. ST. JOHN'S WORT [Concomitant]

REACTIONS (1)
  - NAUSEA [None]
